FAERS Safety Report 25361873 (Version 6)
Quarter: 2025Q3

REPORT INFORMATION
  Report Type: Report from Study
  Country: CA (occurrence: CA)
  Receive Date: 20250527
  Receipt Date: 20250919
  Transmission Date: 20251020
  Serious: Yes (Other)
  Sender: CELLTRION
  Company Number: CA-CELLTRION INC.-2025CA004965

PATIENT

DRUGS (3)
  1. USTEKINUMAB [Suspect]
     Active Substance: USTEKINUMAB
     Indication: Psoriatic arthropathy
     Route: 058
     Dates: start: 20241119
  2. USTEKINUMAB [Suspect]
     Active Substance: USTEKINUMAB
     Indication: Psoriasis
     Route: 058
  3. USTEKINUMAB [Suspect]
     Active Substance: USTEKINUMAB
     Route: 058
     Dates: start: 20250515

REACTIONS (15)
  - Abdominal distension [Unknown]
  - Decreased appetite [Unknown]
  - Pain in extremity [Unknown]
  - Psoriasis [Unknown]
  - Weight increased [Unknown]
  - Fatigue [Recovered/Resolved]
  - Headache [Unknown]
  - Sinusitis [Unknown]
  - Injection site pain [Unknown]
  - Drug effect less than expected [Unknown]
  - Therapy non-responder [Unknown]
  - Abdominal pain [Recovered/Resolved]
  - Pyrexia [Recovered/Resolved]
  - Nausea [Recovered/Resolved]
  - Therapy interrupted [Unknown]

NARRATIVE: CASE EVENT DATE: 20250422
